FAERS Safety Report 5249194-9 (Version None)
Quarter: 2007Q1

REPORT INFORMATION
  Report Type: 
  Country: None (occurrence: None)
  Receive Date: 20070228
  Receipt Date: 20070219
  Transmission Date: 20070707
  Serious: Yes (Hospitalization)
  Sender: FDA-Public Use
  Company Number: FR-ROCHE-465745

PATIENT
  Age: 69 Year
  Sex: Male

DRUGS (5)
  1. ROCEPHIN [Suspect]
     Indication: OSTEITIS
     Dosage: FORM REPORTED AS INJECTABLE SOLUTION.
     Route: 042
     Dates: start: 20060720, end: 20060907
  2. CIPROFLOXACIN [Suspect]
     Indication: OSTEITIS
     Dosage: DRUG REPORTED AS: CIFLOX 500 MG.
     Route: 048
     Dates: start: 20060806, end: 20060907
  3. LOVENOX [Concomitant]
     Route: 058
  4. LOZOL [Concomitant]
     Route: 048
  5. KEPPRA [Concomitant]
     Route: 048

REACTIONS (5)
  - EOSINOPHILIA [None]
  - ERYTHEMA [None]
  - OEDEMA [None]
  - RASH [None]
  - RASH MORBILLIFORM [None]
